FAERS Safety Report 26074387 (Version 1)
Quarter: 2025Q4

REPORT INFORMATION
  Report Type: Report from Study
  Country: US (occurrence: US)
  Receive Date: 20251121
  Receipt Date: 20251121
  Transmission Date: 20260117
  Serious: Yes (Hospitalization, Other)
  Sender: ABBVIE
  Company Number: US-ABBVIE-6531048

PATIENT
  Sex: Female

DRUGS (1)
  1. LINZESS [Suspect]
     Active Substance: LINACLOTIDE
     Indication: Product used for unknown indication
     Route: 048

REACTIONS (7)
  - Abdominal pain upper [Unknown]
  - Pneumonia [Unknown]
  - Abdominal discomfort [Unknown]
  - Hernia obstructive [Unknown]
  - Constipation [Unknown]
  - Haematoma [Unknown]
  - Joint injury [Unknown]
